FAERS Safety Report 13711907 (Version 1)
Quarter: 2017Q3

REPORT INFORMATION
  Report Type: Spontaneous
  Country: US (occurrence: US)
  Receive Date: 20170703
  Receipt Date: 20170703
  Transmission Date: 20171127
  Serious: Yes (Disabling)
  Sender: FDA-Public Use
  Company Number: None

PATIENT
  Age: 65 Year
  Sex: Female
  Weight: 48.15 kg

DRUGS (4)
  1. TOPAMAX [Concomitant]
     Active Substance: TOPIRAMATE
  2. CLONAZAPAM [Suspect]
     Active Substance: CLONAZEPAM
     Indication: SEIZURE
     Dosage: ?          OTHER STRENGTH:MG;QUANTITY:90 TABLET(S); EVERY 6 HOURS ORAL?
     Route: 048
     Dates: start: 19830301, end: 20170403
  3. VITAMIN B12 [Concomitant]
     Active Substance: CYANOCOBALAMIN
  4. EFFEXOR [Concomitant]
     Active Substance: VENLAFAXINE HYDROCHLORIDE

REACTIONS (15)
  - Neuropathy peripheral [None]
  - Weight decreased [None]
  - Photosensitivity reaction [None]
  - Generalised tonic-clonic seizure [None]
  - Dysgeusia [None]
  - Speech disorder [None]
  - Arthralgia [None]
  - Drug withdrawal syndrome [None]
  - Hyperaesthesia [None]
  - Dizziness [None]
  - Pain [None]
  - Hyperacusis [None]
  - Impaired driving ability [None]
  - Nervousness [None]
  - Pain in jaw [None]

NARRATIVE: CASE EVENT DATE: 20170403
